FAERS Safety Report 21883833 (Version 1)
Quarter: 2023Q1

REPORT INFORMATION
  Report Type: Spontaneous
  Country: US (occurrence: US)
  Receive Date: 20230119
  Receipt Date: 20230119
  Transmission Date: 20230418
  Serious: Yes (Other)
  Sender: FDA-Public Use
  Company Number: US-GALDERMA-US2023000239

PATIENT

DRUGS (1)
  1. CLOBETASOL PROPIONATE [Suspect]
     Active Substance: CLOBETASOL PROPIONATE
     Indication: Alopecia
     Dosage: 1 DOSAGE FORM, BID
     Route: 061

REACTIONS (6)
  - Staphylococcal infection [Unknown]
  - Sjogren^s syndrome [Unknown]
  - Dry eye [Unknown]
  - Wound secretion [Unknown]
  - Illness [Unknown]
  - Product use in unapproved indication [Recovered/Resolved]
